FAERS Safety Report 9415391 (Version 3)
Quarter: 2013Q3

REPORT INFORMATION
  Report Type: Spontaneous
  Country: US (occurrence: US)
  Receive Date: 20130723
  Receipt Date: 20130812
  Transmission Date: 20140515
  Serious: No
  Sender: FDA-Public Use
  Company Number: US-PFIZER INC-2013210979

PATIENT
  Age: 83 Year
  Sex: Female
  Weight: 48.98 kg

DRUGS (7)
  1. TESSALON [Suspect]
     Indication: COUGH
     Dosage: UNK
     Dates: start: 2013
  2. NIFEDIPINE [Suspect]
     Dosage: 90 MG, ONCE A DAY
     Route: 048
     Dates: start: 2013
  3. NIFEDIPINE [Suspect]
     Dosage: 30 MG, ONCE A DAY
     Route: 048
     Dates: start: 201306, end: 2013
  4. NIFEDIPINE [Suspect]
     Dosage: 30 MG, UNK
  5. NIFEDIPINE [Suspect]
     Dosage: 90 MG, UNK
     Dates: start: 20130607
  6. HYDROCHLOROTHIAZIDE [Concomitant]
     Dosage: UNK
  7. CARVEDILOL [Concomitant]
     Dosage: 12.5 MG, UNK

REACTIONS (2)
  - Cough [Not Recovered/Not Resolved]
  - Drug ineffective [Unknown]
